FAERS Safety Report 20197245 (Version 2)
Quarter: 2022Q2

REPORT INFORMATION
  Report Type: Spontaneous
  Country: NL (occurrence: NL)
  Receive Date: 20211217
  Receipt Date: 20220401
  Transmission Date: 20220721
  Serious: Yes (Other)
  Sender: FDA-Public Use
  Company Number: NL-SUN PHARMACEUTICAL INDUSTRIES LTD-2021RR-320828

PATIENT
  Age: 31 Year
  Sex: Female
  Weight: 70 kg

DRUGS (2)
  1. PREGABALIN [Suspect]
     Active Substance: PREGABALIN
     Indication: Complex regional pain syndrome
     Dosage: 75 MILLIGRAM, BID, 2 X A DAY 1 PIECE
     Route: 065
     Dates: start: 20211106, end: 20211109
  2. ETHINYLESTRADIOL/LEVONORGESTREL TABLET 20/100UG / Brand name not sp... [Concomitant]
     Indication: Product used for unknown indication
     Dosage: UNK, ORAAL
     Route: 065

REACTIONS (2)
  - Dizziness [Recovered/Resolved]
  - Loss of consciousness [Recovered/Resolved]

NARRATIVE: CASE EVENT DATE: 20211109
